FAERS Safety Report 9176166 (Version 1)
Quarter: 2012Q4

REPORT INFORMATION
  Report Type: 
  Country: JP (occurrence: JP)
  Receive Date: 20120926
  Receipt Date: 20120926
  Transmission Date: 20130627
  Serious: Yes (Other)
  Sender: FDA-Public Use
  Company Number: PHHY2012JP083047

PATIENT
  Age: 63 None
  Sex: Male

DRUGS (3)
  1. ZOMETA [Suspect]
     Indication: METASTASES TO BONE
     Dosage: UNK UKN, UNK
     Route: 041
     Dates: start: 201202
  2. ZOMETA [Suspect]
     Dosage: UNK UKN, UNK
     Route: 041
     Dates: end: 201203
  3. RANMARK [Suspect]
     Indication: METASTASES TO BONE
     Dosage: 120 mg, UNK
     Dates: start: 201204, end: 201205

REACTIONS (2)
  - Osteonecrosis of jaw [Not Recovered/Not Resolved]
  - Exposed bone in jaw [Unknown]
